FAERS Safety Report 16542798 (Version 1)
Quarter: 2019Q3

REPORT INFORMATION
  Report Type: Report from Study
  Country: US (occurrence: US)
  Receive Date: 20190709
  Receipt Date: 20190709
  Transmission Date: 20191004
  Serious: No
  Sender: FDA-Public Use
  Company Number: US-BEH-2019103320

PATIENT
  Age: 58 Year
  Sex: Male
  Weight: 61.68 kg

DRUGS (1)
  1. HAEGARDA [Suspect]
     Active Substance: HUMAN C1-ESTERASE INHIBITOR
     Indication: PROPHYLAXIS
     Dosage: 3700 INTERNATIONAL UNIT, BIW
     Route: 065

REACTIONS (2)
  - Malaise [Unknown]
  - Immune system disorder [Unknown]
